FAERS Safety Report 18484000 (Version 1)
Quarter: 2020Q4

REPORT INFORMATION
  Report Type: Spontaneous
  Country: FR (occurrence: FR)
  Receive Date: 20201109
  Receipt Date: 20201109
  Transmission Date: 20210114
  Serious: Yes (Other)
  Sender: FDA-Public Use
  Company Number: FR-ROCHE-2706478

PATIENT
  Sex: Female

DRUGS (1)
  1. XELODA [Suspect]
     Active Substance: CAPECITABINE
     Indication: BONE CANCER
     Route: 048
     Dates: start: 20200824

REACTIONS (7)
  - Tooth infection [Recovered/Resolved]
  - Intentional product use issue [Unknown]
  - Off label use [Unknown]
  - Skin discolouration [Not Recovered/Not Resolved]
  - Toxic skin eruption [Recovered/Resolved]
  - Gait disturbance [Recovered/Resolved]
  - Weight decreased [Not Recovered/Not Resolved]
